FAERS Safety Report 12795922 (Version 1)
Quarter: 2016Q3

REPORT INFORMATION
  Report Type: Spontaneous
  Country: FR (occurrence: FR)
  Receive Date: 20160929
  Receipt Date: 20160929
  Transmission Date: 20161109
  Serious: Yes (Hospitalization)
  Sender: FDA-Public Use
  Company Number: FR-BAYER-2014-189917

PATIENT
  Age: 78 Year
  Sex: Male
  Weight: 92 kg

DRUGS (11)
  1. LYRICA [Concomitant]
     Active Substance: PREGABALIN
     Dosage: 125 MG, TID
     Route: 048
  2. FUCIDINE [Concomitant]
     Active Substance: FUSIDIC ACID
     Dosage: UNK
     Dates: start: 20140922, end: 20141010
  3. BISOPROLOL HEMIFUMARATE [Concomitant]
     Active Substance: BISOPROLOL FUMARATE
     Indication: HYPERTENSION
     Dosage: 2.5 MG, QD
     Route: 048
  4. CIFLOX [Suspect]
     Active Substance: CIPROFLOXACIN
     Dosage: UNK
     Dates: start: 20141010, end: 20141114
  5. INEXIUM [Concomitant]
     Active Substance: ESOMEPRAZOLE
     Dosage: 40 MG, QD
     Route: 048
  6. FORTUM [Suspect]
     Active Substance: CEFTAZIDIME
     Dosage: 2 G, UNK
     Dates: start: 20140110, end: 20141114
  7. ZYVOXID [Concomitant]
     Active Substance: LINEZOLID
     Dosage: UNK
     Dates: start: 20140903, end: 20140922
  8. NORSET [Concomitant]
     Active Substance: MIRTAZAPINE
     Dosage: 15 MG, QD
     Route: 048
  9. PRIMALAN [Concomitant]
     Active Substance: MEQUITAZINE
     Dosage: 0.5 DF, BID
     Route: 048
  10. LASILIX [Concomitant]
     Active Substance: FUROSEMIDE
     Indication: HYPERTENSION
     Dosage: 20 MG, QD
     Route: 048
  11. GRANUDOXY [Concomitant]
     Dosage: UNK
     Dates: start: 20140922, end: 20141010

REACTIONS (2)
  - Drug reaction with eosinophilia and systemic symptoms [Recovered/Resolved]
  - Acute kidney injury [Recovered/Resolved]

NARRATIVE: CASE EVENT DATE: 20141112
